FAERS Safety Report 4590061-1 (Version None)
Quarter: 2005Q1

REPORT INFORMATION
  Report Type: 
  Country: None (occurrence: None)
  Receive Date: 20050217
  Receipt Date: 20050217
  Transmission Date: 20050727
  Serious: Yes (Other)
  Sender: FDA-Public Use
  Company Number: None

PATIENT
  Age: 86 Year
  Sex: Female
  Weight: 68.0396 kg

DRUGS (8)
  1. EXELON [Suspect]
     Indication: MEMORY IMPAIRMENT
     Dosage: 1.5 MG BID X 4 MOS, THEN (CONT) 6 MG BID
     Dates: start: 20040401, end: 20050101
  2. AVAPRO [Concomitant]
  3. CELEBREX [Concomitant]
  4. TYLENOL (CAPLET) [Concomitant]
  5. MULTI-VITAMIN [Concomitant]
  6. FOLIC ACID [Concomitant]
  7. VITAMIN B-12 [Concomitant]
  8. VITAMIN B6 [Concomitant]

REACTIONS (1)
  - PERIPHERAL COLDNESS [None]
